FAERS Safety Report 13029661 (Version 1)
Quarter: 2016Q4

REPORT INFORMATION
  Report Type: Spontaneous
  Country: US (occurrence: US)
  Receive Date: 20161215
  Receipt Date: 20161215
  Transmission Date: 20170207
  Serious: No
  Sender: FDA-Public Use
  Company Number: US-BIOVITRUM-2015US0216

PATIENT
  Age: 9 Year
  Sex: Female

DRUGS (5)
  1. METHOTREXATE. [Concomitant]
     Active Substance: METHOTREXATE
     Indication: JUVENILE IDIOPATHIC ARTHRITIS
     Dosage: 6 TABS WEEKLY (2.5 MG TAB)
     Route: 048
  2. KINERET [Suspect]
     Active Substance: ANAKINRA
     Indication: JUVENILE IDIOPATHIC ARTHRITIS
     Route: 058
     Dates: start: 201410
  3. VITAMIN D [Concomitant]
     Active Substance: CHOLECALCIFEROL
  4. METHOTREXATE. [Concomitant]
     Active Substance: METHOTREXATE
     Dosage: 12 MG WEEKLY
     Dates: start: 201409
  5. FOLIC ACID. [Concomitant]
     Active Substance: FOLIC ACID

REACTIONS (5)
  - Injection site pain [Not Recovered/Not Resolved]
  - Gastric disorder [Recovered/Resolved]
  - Injection site reaction [Recovered/Resolved]
  - Drug ineffective [Unknown]
  - Syringe issue [Not Recovered/Not Resolved]

NARRATIVE: CASE EVENT DATE: 201410
